FAERS Safety Report 8395948-X (Version None)
Quarter: 2012Q2

REPORT INFORMATION
  Report Type: 
  Country: None (occurrence: None)
  Receive Date: 20120530
  Receipt Date: 20120525
  Transmission Date: 20120825
  Serious: Yes (Death)
  Sender: FDA-Public Use
  Company Number: PL-ROCHE-1072784

PATIENT
  Sex: Female

DRUGS (3)
  1. MABTHERA [Suspect]
     Route: 042
     Dates: start: 20111121
  2. MABTHERA [Suspect]
     Route: 042
     Dates: start: 20111205, end: 20111205
  3. MABTHERA [Suspect]
     Indication: RHEUMATOID ARTHRITIS
     Route: 042
     Dates: start: 20091001

REACTIONS (2)
  - CONVULSION [None]
  - BRAIN STEM STROKE [None]
